FAERS Safety Report 6445879-7 (Version None)
Quarter: 2009Q4

REPORT INFORMATION
  Report Type: 
  Country: None (occurrence: None)
  Receive Date: 20091119
  Receipt Date: 20091105
  Transmission Date: 20100525
  Serious: Yes (Other)
  Sender: FDA-Public Use
  Company Number: CA-SOLVAY-00309006554

PATIENT
  Age: 51 Year
  Sex: Female

DRUGS (5)
  1. METFORMIN HCL [Concomitant]
     Indication: DRUG USE FOR UNKNOWN INDICATION
     Dosage: DAILY DOSE:  UNKNOWN, AS USED: QD, BID (TO BE CLAIFIED)
     Route: 065
  2. CREON [Suspect]
     Indication: DRUG USE FOR UNKNOWN INDICATION
     Dosage: DAILY DOSE:  UNKNOWN
     Route: 048
  3. CREON [Suspect]
     Dosage: DAILY DOSE:  UNKNOWN, INCREASED DOSAGE
     Route: 048
  4. CREON [Suspect]
     Dosage: DAILY DOSE:  UNKNOWN, AS USED: P.C (POST CIBUM, AFTE MEALS).
     Route: 048
  5. RAMIPRIL [Concomitant]
     Indication: DRUG USE FOR UNKNOWN INDICATION
     Dosage: DAILY DOSE:  UNKNOWN, AS USED: QD.
     Route: 065

REACTIONS (1)
  - BLOOD GLUCOSE ABNORMAL [None]
